FAERS Safety Report 8811974 (Version 1)
Quarter: 2012Q4

REPORT INFORMATION
  Report Type: 
  Country: US (occurrence: US)
  Receive Date: 20120927
  Receipt Date: 20120927
  Transmission Date: 20130627
  Serious: No
  Sender: FDA-Public Use
  Company Number: US-009507513-1209USA002530

PATIENT
  Sex: Female

DRUGS (3)
  1. PEG-INTRON [Suspect]
     Indication: HEPATITIS C
     Dosage: 800 mg, tid
     Dates: start: 201204
  2. PEG-INTRON [Suspect]
     Indication: HEPATITIS C
     Dosage: 96 Microgram, qw
     Dates: start: 201203
  3. RIBAPAK [Concomitant]
     Indication: HEPATITIS C
     Dosage: UNK

REACTIONS (1)
  - Laboratory test abnormal [Unknown]
